FAERS Safety Report 8822862 (Version 1)
Quarter: 2012Q4

REPORT INFORMATION
  Report Type: 
  Country: HR (occurrence: HR)
  Receive Date: 20121003
  Receipt Date: 20121003
  Transmission Date: 20130627
  Serious: Yes (Other)
  Sender: FDA-Public Use
  Company Number: HR-ASTRAZENECA-2012SE74011

PATIENT
  Age: 35 Year
  Sex: Female
  Weight: 56 kg

DRUGS (2)
  1. NEXIUM [Suspect]
     Indication: HELICOBACTER INFECTION
     Route: 048
  2. NEXIUM [Suspect]
     Indication: HELICOBACTER INFECTION
     Route: 048

REACTIONS (8)
  - Dyspnoea [Unknown]
  - Pyrexia [Unknown]
  - Dyspepsia [Unknown]
  - Glossodynia [Unknown]
  - Swollen tongue [Unknown]
  - Rash [Unknown]
  - Dysphagia [Unknown]
  - Incorrect dose administered [Unknown]
